FAERS Safety Report 6435216-6 (Version None)
Quarter: 2009Q4

REPORT INFORMATION
  Report Type: 
  Country: None (occurrence: None)
  Receive Date: 20091110
  Receipt Date: 20091028
  Transmission Date: 20100525
  Serious: Yes (Disabling)
  Sender: FDA-Public Use
  Company Number: US-ELI_LILLY_AND_COMPANY-US200911000270

PATIENT
  Sex: Male

DRUGS (6)
  1. ZYPREXA ZYDIS [Suspect]
     Indication: BIPOLAR DISORDER
     Dosage: 5 MG, UNK
  2. ZYPREXA ZYDIS [Suspect]
     Dosage: 10 MG, UNK
  3. ZYPREXA ZYDIS [Suspect]
     Dosage: 15 MG, UNK
  4. ZYPREXA ZYDIS [Suspect]
     Dosage: 20 MG, UNK
  5. CYMBALTA [Suspect]
     Indication: DEPRESSION
     Dosage: 60 MG, DAILY (1/D)
  6. LEXAPRO [Concomitant]

REACTIONS (4)
  - AGGRESSION [None]
  - DISABILITY [None]
  - FEELING ABNORMAL [None]
  - OBSESSIVE-COMPULSIVE DISORDER [None]
